FAERS Safety Report 4617009-5 (Version None)
Quarter: 2005Q1

REPORT INFORMATION
  Report Type: 
  Country: None (occurrence: None)
  Receive Date: 20050318
  Receipt Date: 20050215
  Transmission Date: 20050727
  Serious: Yes (Life-Threatening, Other)
  Sender: FDA-Public Use
  Company Number: ENTC2005-0049

PATIENT
  Age: 53 Year
  Sex: Male

DRUGS (3)
  1. STALEVO 100 [Suspect]
     Indication: PARKINSON'S DISEASE
     Dosage: 150/37.5,5/200 MG X 4, ORAL
     Route: 048
     Dates: start: 20050119, end: 20050121
  2. EFFEXOR [Suspect]
     Indication: DEPRESSION
     Dosage: 37.5 MG/BID, ORAL
     Route: 048
     Dates: start: 20050119
  3. REQUIP [Concomitant]

REACTIONS (4)
  - HALLUCINATION [None]
  - HOMICIDAL IDEATION [None]
  - INTENTIONAL SELF-INJURY [None]
  - SUICIDE ATTEMPT [None]
